FAERS Safety Report 7067109-8 (Version None)
Quarter: 2010Q4

REPORT INFORMATION
  Report Type: 
  Country: None (occurrence: None)
  Receive Date: 20101028
  Receipt Date: 20101018
  Transmission Date: 20110411
  Serious: No
  Sender: FDA-Public Use
  Company Number: US-BIOGENIDEC-2010BI036880

PATIENT
  Age: 58 Year
  Sex: Female

DRUGS (1)
  1. TYSABRI [Suspect]
     Indication: MULTIPLE SCLEROSIS
     Route: 042
     Dates: start: 20091002

REACTIONS (5)
  - FATIGUE [None]
  - GAIT DISTURBANCE [None]
  - NARCOLEPSY [None]
  - SENSATION OF HEAVINESS [None]
  - SLEEP APNOEA SYNDROME [None]
